FAERS Safety Report 7538971-7 (Version None)
Quarter: 2011Q2

REPORT INFORMATION
  Report Type: 
  Country: None (occurrence: None)
  Receive Date: 20110603
  Receipt Date: 20110519
  Transmission Date: 20111010
  Serious: Yes (Other)
  Sender: FDA-Public Use
  Company Number: 2011-1347

PATIENT
  Age: 41 Year
  Sex: Female
  Weight: 56 kg

DRUGS (2)
  1. REPASRASTIM (ALL OTHER THERAPEUTIC PRODUCTS) [Concomitant]
  2. BOTULINUM TOXIN TYPE A [Suspect]
     Indication: SKIN WRINKLING
     Dates: start: 20110428, end: 20110428

REACTIONS (9)
  - PHOTOPHOBIA [None]
  - PYREXIA [None]
  - FATIGUE [None]
  - DRUG INEFFECTIVE [None]
  - INJECTION SITE ERYTHEMA [None]
  - INJECTION SITE PRURITUS [None]
  - LYMPHADENOPATHY [None]
  - ARTHRALGIA [None]
  - INJECTION SITE PAIN [None]
